FAERS Safety Report 10532840 (Version 1)
Quarter: 2014Q4

REPORT INFORMATION
  Report Type: Spontaneous
  Country: CN (occurrence: CN)
  Receive Date: 20141022
  Receipt Date: 20141022
  Transmission Date: 20150529
  Serious: Yes (Other)
  Sender: FDA-Public Use
  Company Number: CN-PFIZER INC-2014287166

PATIENT
  Age: 64 Year
  Sex: Male
  Weight: 50 kg

DRUGS (1)
  1. NORVASC [Suspect]
     Active Substance: AMLODIPINE BESYLATE
     Indication: HYPERTENSION
     Dosage: 5 MG, 1X/DAY
     Route: 048
     Dates: start: 20130107, end: 20140605

REACTIONS (3)
  - Gingival abscess [Unknown]
  - Gingival hyperplasia [Unknown]
  - Gingival bleeding [Unknown]

NARRATIVE: CASE EVENT DATE: 201403
